FAERS Safety Report 6979725-X (Version None)
Quarter: 2010Q3

REPORT INFORMATION
  Report Type: 
  Country: None (occurrence: None)
  Receive Date: 20100913
  Receipt Date: 20091228
  Transmission Date: 20110219
  Serious: Yes (Hospitalization)
  Sender: FDA-Public Use
  Company Number: PH-BRISTOL-MYERS SQUIBB COMPANY-14919773

PATIENT
  Age: 56 Year
  Sex: Female

DRUGS (10)
  1. ABILIFY [Suspect]
     Indication: BIPOLAR DISORDER
     Route: 048
     Dates: start: 20090307, end: 20090418
  2. VALPROIC ACID [Suspect]
     Indication: BIPOLAR DISORDER
     Route: 048
     Dates: start: 20090307, end: 20090418
  3. ASCORBIC ACID [Concomitant]
     Dates: start: 20080101
  4. ERGOCALCIFEROL [Concomitant]
     Dates: start: 20080101
  5. FOLIC ACID [Concomitant]
     Dates: start: 20080101
  6. NICOTINAMIDE [Concomitant]
     Dates: start: 20080101
  7. PANTHENOL [Concomitant]
     Dates: start: 20080101
  8. RETINOL [Concomitant]
     Dates: start: 20080101
  9. RIBOFLAVIN TAB [Concomitant]
     Dates: start: 20080101
  10. THIAMINE HCL [Concomitant]
     Dates: start: 20080101

REACTIONS (3)
  - ABNORMAL BEHAVIOUR [None]
  - ELECTROLYTE IMBALANCE [None]
  - MENTAL DISORDER [None]
